FAERS Safety Report 8167182-X (Version None)
Quarter: 2012Q1

REPORT INFORMATION
  Report Type: 
  Country: None (occurrence: None)
  Receive Date: 20120227
  Receipt Date: 20120213
  Transmission Date: 20120608
  Serious: Yes (Death, Life-Threatening)
  Sender: FDA-Public Use
  Company Number: US-ELI_LILLY_AND_COMPANY-US201202003903

PATIENT
  Age: 59 Year
  Sex: Female

DRUGS (3)
  1. AMITRIPTYLINE HCL [Concomitant]
  2. OPIOIDS [Concomitant]
  3. PROZAC [Suspect]

REACTIONS (2)
  - CARDIO-RESPIRATORY ARREST [None]
  - COMPLETED SUICIDE [None]
